FAERS Safety Report 17138256 (Version 1)
Quarter: 2019Q4

REPORT INFORMATION
  Report Type: Spontaneous
  Country: SE (occurrence: SE)
  Receive Date: 20191211
  Receipt Date: 20191211
  Transmission Date: 20200122
  Serious: Yes (Hospitalization)
  Sender: FDA-Public Use
  Company Number: SE-TEVA-2019-SE-1149123

PATIENT
  Age: 27 Year
  Sex: Male

DRUGS (2)
  1. LERGIGAN (PROMETHAZINE HYDROCHLORIDE) [Suspect]
     Active Substance: PROMETHAZINE HYDROCHLORIDE
     Dosage: 2 GRAMS
     Route: 048
     Dates: start: 20180108, end: 20180108
  2. ESCITALOPRAM [Suspect]
     Active Substance: ESCITALOPRAM OXALATE
     Dosage: 30MG
     Route: 048
     Dates: start: 20180108, end: 20180108

REACTIONS (6)
  - Tachycardia [Unknown]
  - Agitation [Unknown]
  - Intentional overdose [Unknown]
  - Intentional self-injury [Unknown]
  - Muscle twitching [Unknown]
  - Muscle spasticity [Unknown]

NARRATIVE: CASE EVENT DATE: 20180108
